FAERS Safety Report 7448660-5 (Version None)
Quarter: 2011Q2

REPORT INFORMATION
  Report Type: 
  Country: None (occurrence: None)
  Receive Date: 20110429
  Receipt Date: 20100702
  Transmission Date: 20111010
  Serious: No
  Sender: FDA-Public Use
  Company Number: US-ASTRAZENECA-2010SE31249

PATIENT
  Age: 27618 Day
  Sex: Female
  Weight: 64.9 kg

DRUGS (6)
  1. TRIMETHOPRIM [Suspect]
  2. TENORMIN [Concomitant]
  3. NEXIUM [Suspect]
     Route: 048
     Dates: start: 20100702, end: 20100702
  4. NEXIUM [Suspect]
     Route: 048
     Dates: start: 20100630, end: 20100630
  5. NEXIUM [Suspect]
     Route: 048
     Dates: start: 20100701, end: 20100701
  6. GLUCATROL [Concomitant]

REACTIONS (7)
  - ABDOMINAL PAIN UPPER [None]
  - FEELING HOT [None]
  - FATIGUE [None]
  - NAUSEA [None]
  - ASTHENIA [None]
  - NERVOUSNESS [None]
  - ACCIDENTAL EXPOSURE [None]
